FAERS Safety Report 15790413 (Version 1)
Quarter: 2019Q1

REPORT INFORMATION
  Report Type: Spontaneous
  Country: US (occurrence: US)
  Receive Date: 20190104
  Receipt Date: 20190104
  Transmission Date: 20190417
  Serious: Yes (Other)
  Sender: FDA-Public Use
  Company Number: US-PFIZER INC-2019001642

PATIENT
  Age: 57 Year
  Sex: Female
  Weight: 108.8 kg

DRUGS (1)
  1. NEURONTIN [Suspect]
     Active Substance: GABAPENTIN
     Dosage: 2700 MG, 3X/DAY
     Dates: start: 2003

REACTIONS (6)
  - Burning sensation [Unknown]
  - Impaired driving ability [Unknown]
  - Paraesthesia [Unknown]
  - Intentional product misuse [Unknown]
  - Somnolence [Unknown]
  - Overdose [Unknown]
